FAERS Safety Report 12799696 (Version 1)
Quarter: 2016Q3

REPORT INFORMATION
  Report Type: Spontaneous
  Country: US (occurrence: US)
  Receive Date: 20160930
  Receipt Date: 20160930
  Transmission Date: 20161109
  Serious: Yes (Death)
  Sender: FDA-Public Use
  Company Number: US-PFIZER INC-2016442549

PATIENT
  Age: 65 Year
  Sex: Male
  Weight: 65.77 kg

DRUGS (1)
  1. SUTENT [Suspect]
     Active Substance: SUNITINIB MALATE
     Dosage: UNK

REACTIONS (3)
  - Disease progression [Fatal]
  - Neoplasm progression [Fatal]
  - Pulmonary fibrosis [Fatal]
